FAERS Safety Report 16654519 (Version 1)
Quarter: 2019Q3

REPORT INFORMATION
  Report Type: Spontaneous
  Country: FR (occurrence: FR)
  Receive Date: 20190731
  Receipt Date: 20190731
  Transmission Date: 20191004
  Serious: Yes (Hospitalization)
  Sender: FDA-Public Use
  Company Number: FR-PFIZER INC-2019325839

PATIENT
  Age: 82 Year
  Sex: Male

DRUGS (4)
  1. XENAZINE [Suspect]
     Active Substance: TETRABENAZINE
     Indication: EXTRAPYRAMIDAL DISORDER
     Dosage: 1 DF, 1X/DAY
     Route: 048
     Dates: start: 20190110, end: 20190121
  2. CORDARONE [Suspect]
     Active Substance: AMIODARONE HYDROCHLORIDE
     Indication: CARDIAC FLUTTER
     Dosage: 1 DF, 1X/DAY
     Route: 048
     Dates: end: 20190121
  3. TAMSULOSINE [TAMSULOSIN] [Concomitant]
     Dosage: 0.4 MG, 1X/DAY
     Route: 048
  4. ELIQUIS [Concomitant]
     Active Substance: APIXABAN
     Dosage: 2 DF, 1X/DAY
     Route: 048

REACTIONS (4)
  - Hyperthermia [Recovered/Resolved]
  - Vomiting [Recovered/Resolved]
  - Tremor [Not Recovered/Not Resolved]
  - Condition aggravated [Recovering/Resolving]

NARRATIVE: CASE EVENT DATE: 20190118
